FAERS Safety Report 9924656 (Version 3)
Quarter: 2014Q2

REPORT INFORMATION
  Report Type: Spontaneous
  Country: US (occurrence: US)
  Receive Date: 20140226
  Receipt Date: 20140418
  Transmission Date: 20141212
  Serious: No
  Sender: FDA-Public Use
  Company Number: US-PFIZER INC-2014049634

PATIENT
  Age: 13 Year
  Sex: Male

DRUGS (1)
  1. GENOTROPIN [Suspect]
     Dosage: 1.2 MG, DAILY
     Route: 058
     Dates: start: 20140106, end: 20140228

REACTIONS (2)
  - Fatigue [Unknown]
  - Arthralgia [Recovered/Resolved]
